FAERS Safety Report 7495022-0 (Version None)
Quarter: 2011Q2

REPORT INFORMATION
  Report Type: 
  Country: None (occurrence: None)
  Receive Date: 20110520
  Receipt Date: 20110509
  Transmission Date: 20111010
  Serious: Yes (Other)
  Sender: FDA-Public Use
  Company Number: CA-ELI_LILLY_AND_COMPANY-CA201103003598

PATIENT
  Sex: Female

DRUGS (1)
  1. HUMALOG [Suspect]

REACTIONS (4)
  - COELIAC DISEASE [None]
  - RHEUMATOID ARTHRITIS [None]
  - BREAST CANCER FEMALE [None]
  - BREAST CANCER [None]
